FAERS Safety Report 10371106 (Version 1)
Quarter: 2014Q3

REPORT INFORMATION
  Report Type: Spontaneous
  Country: US (occurrence: None)
  Receive Date: 20140806
  Receipt Date: 20140806
  Transmission Date: 20150326
  Serious: Yes (Hospitalization, Other)
  Sender: FDA-Public Use
  Company Number: 2010S1000547

PATIENT
  Age: 62 Year
  Sex: Female
  Weight: 68 kg

DRUGS (6)
  1. TYLENOL [Concomitant]
     Active Substance: ACETAMINOPHEN
  2. NADOLOL. [Concomitant]
     Active Substance: NADOLOL
  3. PHOSPHO-SODA [Suspect]
     Active Substance: SODIUM PHOSPHATE, DIBASIC\SODIUM PHOSPHATE, MONOBASIC
     Indication: COLONOSCOPY
     Route: 048
     Dates: start: 20060821, end: 20060821
  4. ZYRTEC [Concomitant]
     Active Substance: CETIRIZINE HYDROCHLORIDE
  5. PRILOSEC [Concomitant]
     Active Substance: OMEPRAZOLE MAGNESIUM
  6. LEXAPRO [Concomitant]
     Active Substance: ESCITALOPRAM OXALATE

REACTIONS (39)
  - Hypophagia [None]
  - Tubulointerstitial nephritis [None]
  - Nephrogenic anaemia [None]
  - Glomerulonephritis [None]
  - Abdominal pain [None]
  - Anxiety [None]
  - Peritoneal dialysis [None]
  - Chest discomfort [None]
  - Hyperphosphataemia [None]
  - Vomiting [None]
  - Dizziness [None]
  - Hyperparathyroidism secondary [None]
  - Scar [None]
  - Cough [None]
  - Cardiac murmur [None]
  - Chest pain [None]
  - Intermittent claudication [None]
  - Fatigue [None]
  - Palpitations [None]
  - Supraventricular tachycardia [None]
  - Blood pressure increased [None]
  - Renal failure acute [None]
  - Diarrhoea [None]
  - Renal failure chronic [None]
  - Asthenia [None]
  - Pain in extremity [None]
  - Nausea [None]
  - Anaemia [None]
  - Decreased appetite [None]
  - Dehydration [None]
  - Hypokalaemia [None]
  - Post procedural complication [None]
  - Hyperhidrosis [None]
  - Dyspnoea [None]
  - Refusal of treatment by patient [None]
  - Urinary tract infection enterococcal [None]
  - Nephrolithiasis [None]
  - Pneumonia [None]
  - Procedural pain [None]

NARRATIVE: CASE EVENT DATE: 20061130
